FAERS Safety Report 5446841-3 (Version None)
Quarter: 2007Q3

REPORT INFORMATION
  Report Type: 
  Country: None (occurrence: None)
  Receive Date: 20070907
  Receipt Date: 20070827
  Transmission Date: 20080115
  Serious: Yes (Other)
  Sender: FDA-Public Use
  Company Number: US-PFIZER INC-2007072893

PATIENT
  Sex: Female

DRUGS (1)
  1. CHANTIX [Suspect]
     Dates: start: 20070702, end: 20070812

REACTIONS (5)
  - ARTHRALGIA [None]
  - FLUID RETENTION [None]
  - GASTROINTESTINAL DISORDER [None]
  - OEDEMA PERIPHERAL [None]
  - WEIGHT FLUCTUATION [None]
